FAERS Safety Report 16403754 (Version 1)
Quarter: 2019Q2

REPORT INFORMATION
  Report Type: Spontaneous
  Country: US (occurrence: US)
  Receive Date: 20190607
  Receipt Date: 20190607
  Transmission Date: 20190711
  Serious: No
  Sender: FDA-Public Use
  Company Number: US-SUNOVION-2019SUN002259

PATIENT

DRUGS (1)
  1. LATUDA [Suspect]
     Active Substance: LURASIDONE HYDROCHLORIDE
     Route: 048

REACTIONS (6)
  - Intrusive thoughts [Unknown]
  - Nightmare [Unknown]
  - Hallucination, auditory [Unknown]
  - Mania [Unknown]
  - Sleep paralysis [Unknown]
  - Psychotic disorder [Unknown]
